FAERS Safety Report 17697479 (Version 2)
Quarter: 2020Q2

REPORT INFORMATION
  Report Type: Spontaneous
  Country: US (occurrence: US)
  Receive Date: 20200423
  Receipt Date: 20200602
  Transmission Date: 20200714
  Serious: No
  Sender: FDA-Public Use
  Company Number: US-GLAXOSMITHKLINE-US2020AMR069319

PATIENT
  Sex: Male
  Weight: 69.5 kg

DRUGS (1)
  1. TRELEGY ELLIPTA [Suspect]
     Active Substance: FLUTICASONE FUROATE\UMECLIDINIUM BROMIDE\VILANTEROL TRIFENATATE
     Indication: CHRONIC OBSTRUCTIVE PULMONARY DISEASE
     Dosage: 100/62.5/25 UG
     Route: 055
     Dates: start: 2019

REACTIONS (5)
  - Chest discomfort [Unknown]
  - Intentional dose omission [Unknown]
  - Candida infection [Unknown]
  - Intentional product misuse [Unknown]
  - Dyspnoea [Unknown]
